FAERS Safety Report 9693349 (Version 2)
Quarter: 2013Q4

REPORT INFORMATION
  Report Type: Spontaneous
  Country: GB (occurrence: GB)
  Receive Date: 20131118
  Receipt Date: 20131126
  Transmission Date: 20140711
  Serious: Yes (Other)
  Sender: FDA-Public Use
  Company Number: GB-PFIZER INC-2013323688

PATIENT
  Age: 66 Year
  Sex: Male
  Weight: 57 kg

DRUGS (4)
  1. ONDANSETRON [Suspect]
     Indication: ANTIEMETIC SUPPORTIVE CARE
     Dosage: 8 MG, UNK
     Route: 042
  2. OXALIPLATIN [Suspect]
     Indication: OESOPHAGEAL CARCINOMA
     Dosage: 210 MG, UNK
     Route: 042
  3. RALTITREXED [Suspect]
     Indication: OESOPHAGEAL CARCINOMA
     Dosage: 4.9 MG, UNK
     Route: 042
  4. DEXAMETASON [Concomitant]
     Dosage: UNK

REACTIONS (4)
  - Blister [Recovering/Resolving]
  - Discomfort [Recovering/Resolving]
  - Rash erythematous [Recovering/Resolving]
  - Rash [Recovering/Resolving]
